FAERS Safety Report 24943727 (Version 3)
Quarter: 2025Q2

REPORT INFORMATION
  Report Type: Spontaneous
  Country: US (occurrence: US)
  Receive Date: 20250207
  Receipt Date: 20250417
  Transmission Date: 20250717
  Serious: No
  Sender: MYLAN
  Company Number: US-MYLANLABS-2025M1007223

PATIENT
  Age: 69 Year
  Sex: Female
  Weight: 74.84 kg

DRUGS (52)
  1. TYRVAYA [Suspect]
     Active Substance: VARENICLINE TARTRATE
     Indication: Dry eye
     Dosage: 0.03 MILLIGRAM, BID (1 SPRAY IN EACH NOSTRIL TWICE DAILY)
     Dates: start: 20250122
  2. TYRVAYA [Suspect]
     Active Substance: VARENICLINE TARTRATE
     Dosage: 0.03 MILLIGRAM, BID (1 SPRAY IN EACH NOSTRIL TWICE DAILY)
     Route: 045
     Dates: start: 20250122
  3. TYRVAYA [Suspect]
     Active Substance: VARENICLINE TARTRATE
     Dosage: 0.03 MILLIGRAM, BID (1 SPRAY IN EACH NOSTRIL TWICE DAILY)
     Route: 045
     Dates: start: 20250122
  4. TYRVAYA [Suspect]
     Active Substance: VARENICLINE TARTRATE
     Dosage: 0.03 MILLIGRAM, BID (1 SPRAY IN EACH NOSTRIL TWICE DAILY)
     Dates: start: 20250122
  5. ALPRAZOLAM [Concomitant]
     Active Substance: ALPRAZOLAM
  6. ALPRAZOLAM [Concomitant]
     Active Substance: ALPRAZOLAM
     Route: 065
  7. ALPRAZOLAM [Concomitant]
     Active Substance: ALPRAZOLAM
     Route: 065
  8. ALPRAZOLAM [Concomitant]
     Active Substance: ALPRAZOLAM
  9. DULOXETINE [Concomitant]
     Active Substance: DULOXETINE
  10. DULOXETINE [Concomitant]
     Active Substance: DULOXETINE
     Route: 065
  11. DULOXETINE [Concomitant]
     Active Substance: DULOXETINE
     Route: 065
  12. DULOXETINE [Concomitant]
     Active Substance: DULOXETINE
  13. EZETIMIBE [Concomitant]
     Active Substance: EZETIMIBE
  14. EZETIMIBE [Concomitant]
     Active Substance: EZETIMIBE
     Route: 065
  15. EZETIMIBE [Concomitant]
     Active Substance: EZETIMIBE
     Route: 065
  16. EZETIMIBE [Concomitant]
     Active Substance: EZETIMIBE
  17. FARXIGA [Concomitant]
     Active Substance: DAPAGLIFLOZIN PROPANEDIOL
  18. FARXIGA [Concomitant]
     Active Substance: DAPAGLIFLOZIN PROPANEDIOL
     Route: 065
  19. FARXIGA [Concomitant]
     Active Substance: DAPAGLIFLOZIN PROPANEDIOL
     Route: 065
  20. FARXIGA [Concomitant]
     Active Substance: DAPAGLIFLOZIN PROPANEDIOL
  21. FOLIC ACID [Concomitant]
     Active Substance: FOLIC ACID
  22. FOLIC ACID [Concomitant]
     Active Substance: FOLIC ACID
     Route: 065
  23. FOLIC ACID [Concomitant]
     Active Substance: FOLIC ACID
     Route: 065
  24. FOLIC ACID [Concomitant]
     Active Substance: FOLIC ACID
  25. GLIPIZIDE [Concomitant]
     Active Substance: GLIPIZIDE
  26. GLIPIZIDE [Concomitant]
     Active Substance: GLIPIZIDE
     Route: 065
  27. GLIPIZIDE [Concomitant]
     Active Substance: GLIPIZIDE
     Route: 065
  28. GLIPIZIDE [Concomitant]
     Active Substance: GLIPIZIDE
  29. METOPROLOL TARTRATE [Concomitant]
     Active Substance: METOPROLOL TARTRATE
  30. METOPROLOL TARTRATE [Concomitant]
     Active Substance: METOPROLOL TARTRATE
     Route: 065
  31. METOPROLOL TARTRATE [Concomitant]
     Active Substance: METOPROLOL TARTRATE
     Route: 065
  32. METOPROLOL TARTRATE [Concomitant]
     Active Substance: METOPROLOL TARTRATE
  33. MIEBO [Concomitant]
     Active Substance: PERFLUOROHEXYLOCTANE
  34. MIEBO [Concomitant]
     Active Substance: PERFLUOROHEXYLOCTANE
     Route: 065
  35. MIEBO [Concomitant]
     Active Substance: PERFLUOROHEXYLOCTANE
     Route: 065
  36. MIEBO [Concomitant]
     Active Substance: PERFLUOROHEXYLOCTANE
  37. PANTOPRAZOLE [Concomitant]
     Active Substance: PANTOPRAZOLE
  38. PANTOPRAZOLE [Concomitant]
     Active Substance: PANTOPRAZOLE
     Route: 065
  39. PANTOPRAZOLE [Concomitant]
     Active Substance: PANTOPRAZOLE
     Route: 065
  40. PANTOPRAZOLE [Concomitant]
     Active Substance: PANTOPRAZOLE
  41. PROMETHAZINE [Concomitant]
     Active Substance: PROMETHAZINE HYDROCHLORIDE
  42. PROMETHAZINE [Concomitant]
     Active Substance: PROMETHAZINE HYDROCHLORIDE
     Route: 065
  43. PROMETHAZINE [Concomitant]
     Active Substance: PROMETHAZINE HYDROCHLORIDE
     Route: 065
  44. PROMETHAZINE [Concomitant]
     Active Substance: PROMETHAZINE HYDROCHLORIDE
  45. VUITY [Concomitant]
     Active Substance: PILOCARPINE HYDROCHLORIDE
  46. VUITY [Concomitant]
     Active Substance: PILOCARPINE HYDROCHLORIDE
     Route: 065
  47. VUITY [Concomitant]
     Active Substance: PILOCARPINE HYDROCHLORIDE
     Route: 065
  48. VUITY [Concomitant]
     Active Substance: PILOCARPINE HYDROCHLORIDE
  49. RESTASIS [Concomitant]
     Active Substance: CYCLOSPORINE
  50. RESTASIS [Concomitant]
     Active Substance: CYCLOSPORINE
     Route: 065
  51. RESTASIS [Concomitant]
     Active Substance: CYCLOSPORINE
     Route: 065
  52. RESTASIS [Concomitant]
     Active Substance: CYCLOSPORINE

REACTIONS (7)
  - Nausea [Recovered/Resolved]
  - Vomiting [Recovered/Resolved]
  - Abdominal pain upper [Recovered/Resolved]
  - Abdominal discomfort [Recovered/Resolved]
  - Adverse event [Recovered/Resolved]
  - Throat irritation [Recovered/Resolved]
  - Nasal discomfort [Recovered/Resolved]

NARRATIVE: CASE EVENT DATE: 20250122
